FAERS Safety Report 8068820-2 (Version None)
Quarter: 2012Q1

REPORT INFORMATION
  Report Type: 
  Country: None (occurrence: None)
  Receive Date: 20120125
  Receipt Date: 20120113
  Transmission Date: 20120608
  Serious: Yes (Death, Hospitalization)
  Sender: FDA-Public Use
  Company Number: US-RANBAXY-2012US-51967

PATIENT
  Age: 54 Year
  Sex: Male

DRUGS (5)
  1. CLINDAMYCIN [Suspect]
     Indication: TOXOPLASMOSIS
     Dosage: UNK
     Route: 065
  2. DEXAMETHASONE [Suspect]
     Indication: BRAIN OEDEMA
     Dosage: UNK
     Route: 065
  3. PYRIMETHAMINE TAB [Suspect]
     Indication: TOXOPLASMOSIS
     Dosage: UNK
     Route: 065
  4. ATOVAQUONE [Suspect]
     Indication: ANTIFUNGAL PROPHYLAXIS
     Dosage: UNK
     Route: 065
  5. DAPSONE [Suspect]
     Indication: ANTIFUNGAL PROPHYLAXIS
     Dosage: UNK
     Route: 065

REACTIONS (4)
  - PANCYTOPENIA [None]
  - OPHTHALMOPLEGIA [None]
  - TOXICITY TO VARIOUS AGENTS [None]
  - ZYGOMYCOSIS [None]
